FAERS Safety Report 13519349 (Version 1)
Quarter: 2017Q2

REPORT INFORMATION
  Report Type: Spontaneous
  Country: FR (occurrence: FR)
  Receive Date: 20170505
  Receipt Date: 20170505
  Transmission Date: 20170830
  Serious: Yes (Other)
  Sender: FDA-Public Use
  Company Number: FR-ROCHE-1925338

PATIENT
  Age: 60 Year
  Sex: Female

DRUGS (4)
  1. COBIMETINIB [Suspect]
     Active Substance: COBIMETINIB
     Indication: METASTATIC MALIGNANT MELANOMA
     Route: 065
  2. VEMURAFENIB [Suspect]
     Active Substance: VEMURAFENIB
     Indication: METASTATIC MALIGNANT MELANOMA
     Route: 065
  3. VEMURAFENIB [Suspect]
     Active Substance: VEMURAFENIB
     Route: 065
  4. COBIMETINIB [Suspect]
     Active Substance: COBIMETINIB
     Route: 065

REACTIONS (2)
  - Rash [Unknown]
  - Guillain-Barre syndrome [Unknown]
